FAERS Safety Report 7322487-7 (Version None)
Quarter: 2011Q1

REPORT INFORMATION
  Report Type: 
  Country: None (occurrence: None)
  Receive Date: 20110301
  Receipt Date: 20100805
  Transmission Date: 20110831
  Serious: Yes (Other)
  Sender: FDA-Public Use
  Company Number: US-BAYER-201013291NA

PATIENT
  Sex: Female

DRUGS (7)
  1. HYDROCODONE BITARTRATE [Concomitant]
  2. YAZ [Suspect]
     Indication: PRODUCT USED FOR UNKNOWN INDICATION
     Dosage: UNK UNK, QD
     Route: 048
     Dates: start: 20090427
  3. CLARITHROMYCIN [Concomitant]
     Dosage: 500 MG, UNK
  4. BIAXIN [Concomitant]
     Dosage: 500 MG, UNK
  5. SULFAMETHOXAZOLE [Concomitant]
  6. ALBUTEROL [Concomitant]
  7. KARIVA [Concomitant]

REACTIONS (4)
  - GALLBLADDER CHOLESTEROLOSIS [None]
  - ABDOMINAL PAIN UPPER [None]
  - CHOLECYSTITIS CHRONIC [None]
  - CHOLELITHIASIS [None]
